FAERS Safety Report 12155472 (Version 1)
Quarter: 2016Q1

REPORT INFORMATION
  Report Type: Spontaneous
  Country: AE (occurrence: AE)
  Receive Date: 20160307
  Receipt Date: 20160307
  Transmission Date: 20160526
  Serious: Yes (Other)
  Sender: FDA-Public Use
  Company Number: AE-CIPLA LTD.-2016AE01928

PATIENT

DRUGS (7)
  1. PROPOFOL. [Suspect]
     Active Substance: PROPOFOL
     Indication: EPILEPSY
     Dosage: 50 MG, BOLUS
     Route: 042
  2. LEVETIRACETAM. [Suspect]
     Active Substance: LEVETIRACETAM
     Indication: EPILEPSY
     Dosage: 150 MG, BID
     Route: 065
  3. PROPOFOL. [Suspect]
     Active Substance: PROPOFOL
     Dosage: 200MG/H, INFUSION
     Route: 042
  4. TOPIRAMATE. [Suspect]
     Active Substance: TOPIRAMATE
     Indication: EPILEPSY
     Dosage: 200 MG, BID
     Route: 065
  5. LAMOTRIGINE. [Suspect]
     Active Substance: LAMOTRIGINE
     Indication: EPILEPSY
     Dosage: 150 MG, BID
     Route: 065
  6. LORAZEPAM. [Suspect]
     Active Substance: LORAZEPAM
     Indication: EPILEPSY
     Dosage: UNK
     Route: 042
  7. PHENYTOIN. [Suspect]
     Active Substance: PHENYTOIN
     Indication: EPILEPSY
     Dosage: UNK
     Route: 042

REACTIONS (5)
  - Exposure during pregnancy [Unknown]
  - Condition aggravated [Unknown]
  - Treatment noncompliance [Unknown]
  - Drug ineffective [Unknown]
  - Anticonvulsant drug level below therapeutic [Unknown]
